FAERS Safety Report 20898570 (Version 3)
Quarter: 2022Q3

REPORT INFORMATION
  Report Type: Report from Study
  Country: NZ (occurrence: NZ)
  Receive Date: 20220601
  Receipt Date: 20220805
  Transmission Date: 20221026
  Serious: Yes (Other)
  Sender: FDA-Public Use
  Company Number: NZ-JNJFOC-20220553758

PATIENT
  Age: 56 Year
  Sex: Male

DRUGS (1)
  1. REMICADE [Suspect]
     Active Substance: INFLIXIMAB
     Indication: Crohn^s disease
     Route: 041

REACTIONS (2)
  - Small intestinal stenosis [Unknown]
  - Drug ineffective [Unknown]
